FAERS Safety Report 21037307 (Version 2)
Quarter: 2022Q3

REPORT INFORMATION
  Report Type: Spontaneous
  Country: US (occurrence: None)
  Receive Date: 20220703
  Receipt Date: 20220729
  Transmission Date: 20221026
  Serious: Yes (Hospitalization)
  Sender: FDA-Public Use
  Company Number: US-ROCHE-3130849

PATIENT
  Age: 64 Year
  Sex: Female
  Weight: 190 kg

DRUGS (10)
  1. XOLAIR [Suspect]
     Active Substance: OMALIZUMAB
     Indication: Asthma
     Route: 058
     Dates: end: 202201
  2. ADVAIR HFA [Concomitant]
     Active Substance: FLUTICASONE PROPIONATE\SALMETEROL XINAFOATE
     Indication: Asthma
     Dosage: ONGOING; YES
     Route: 055
  3. AZELASTINE HYDROCHLORIDE [Concomitant]
     Active Substance: AZELASTINE HYDROCHLORIDE
     Indication: Asthma
     Dosage: ONGOING; YES
     Route: 055
  4. LORATADINE [Concomitant]
     Active Substance: LORATADINE
     Indication: Asthma
     Dosage: ONGOING; YES
     Route: 048
  5. MONTELUKAST [Concomitant]
     Active Substance: MONTELUKAST SODIUM
     Indication: Asthma
     Dosage: ONGOING; YES
     Route: 048
  6. NEXIUM [Concomitant]
     Active Substance: ESOMEPRAZOLE MAGNESIUM
     Indication: Asthma
     Dosage: ONGOING; YES
     Route: 048
  7. SPIRIVA RESPIMAT [Concomitant]
     Active Substance: TIOTROPIUM BROMIDE
     Indication: Asthma
     Dosage: ONGOING; YES
     Route: 055
  8. LEVOTHYROXINE [Concomitant]
     Active Substance: LEVOTHYROXINE
     Indication: Hypothyroidism
     Dosage: ONGOING; YES
     Route: 048
     Dates: start: 1986
  9. MYRBETRIQ [Concomitant]
     Active Substance: MIRABEGRON
     Indication: Incontinence
     Dosage: ONGOING; YES
     Route: 048
  10. OXYBUTYNIN [Concomitant]
     Active Substance: OXYBUTYNIN
     Indication: Incontinence
     Dosage: ONGOING; YES
     Route: 048
     Dates: start: 1982

REACTIONS (9)
  - Pneumonia [Recovered/Resolved]
  - Product dose omission issue [Unknown]
  - Acute respiratory failure [Recovered/Resolved]
  - Hypoxia [Recovered/Resolved]
  - COVID-19 [Recovering/Resolving]
  - Bronchitis [Recovered/Resolved]
  - Dyspnoea [Not Recovered/Not Resolved]
  - Weight decreased [Not Recovered/Not Resolved]
  - Gastrooesophageal reflux disease [Not Recovered/Not Resolved]

NARRATIVE: CASE EVENT DATE: 20210905
